FAERS Safety Report 10081691 (Version 1)
Quarter: 2014Q2

REPORT INFORMATION
  Report Type: Spontaneous
  Country: GB (occurrence: None)
  Receive Date: 20140414
  Receipt Date: 20140414
  Transmission Date: 20141212
  Serious: Yes (Hospitalization)
  Sender: FDA-Public Use
  Company Number: 2014P1002957

PATIENT
  Age: 54 Year
  Sex: Male
  Weight: 110.77 kg

DRUGS (5)
  1. CIPROFLOXACIN [Suspect]
     Indication: URINARY TRACT INFECTION
     Dates: start: 20131108
  2. SIMVASTATIN [Concomitant]
  3. GLICLAZIDE [Concomitant]
  4. METFORMIN [Concomitant]
  5. EXENATIDE [Concomitant]

REACTIONS (1)
  - Pericarditis [None]
